FAERS Safety Report 23427941 (Version 3)
Quarter: 2024Q2

REPORT INFORMATION
  Report Type: Spontaneous
  Country: US (occurrence: US)
  Receive Date: 20240122
  Receipt Date: 20240621
  Transmission Date: 20240716
  Serious: Yes (Other)
  Sender: FDA-Public Use
  Company Number: US-PFIZER INC-PV202400007909

PATIENT
  Age: 41 Year
  Sex: Male

DRUGS (2)
  1. XELJANZ [Suspect]
     Active Substance: TOFACITINIB CITRATE
     Dosage: 5 MG
  2. REMICADE [Concomitant]
     Active Substance: INFLIXIMAB
     Dosage: UNK

REACTIONS (7)
  - Cataract [Unknown]
  - Fatigue [Unknown]
  - Symptom recurrence [Unknown]
  - Neuralgia [Not Recovered/Not Resolved]
  - Brain fog [Unknown]
  - Memory impairment [Unknown]
  - Product dose omission issue [Unknown]
